FAERS Safety Report 5420934-9 (Version None)
Quarter: 2007Q3

REPORT INFORMATION
  Report Type: 
  Country: None (occurrence: None)
  Receive Date: 20070817
  Receipt Date: 20070802
  Transmission Date: 20080115
  Serious: Yes (Other)
  Sender: FDA-Public Use
  Company Number: 2007US-08946

PATIENT
  Age: 27 Year
  Sex: Female

DRUGS (3)
  1. ISOTRETINOIN [Suspect]
     Indication: DRUG USE FOR UNKNOWN INDICATION
     Dosage: 20 MG,BID, ORAL, 30 MG,BID,ORAL, 40MG,QD, ORAL
     Route: 048
     Dates: end: 20070406
  2. ISOTRETINOIN [Suspect]
     Indication: DRUG USE FOR UNKNOWN INDICATION
     Dosage: 20 MG,BID, ORAL, 30 MG,BID,ORAL, 40MG,QD, ORAL
     Route: 048
     Dates: start: 20070412, end: 20070609
  3. ISOTRETINOIN [Suspect]
     Indication: DRUG USE FOR UNKNOWN INDICATION
     Dosage: 20 MG,BID, ORAL, 30 MG,BID,ORAL, 40MG,QD, ORAL
     Route: 048
     Dates: start: 20061207

REACTIONS (3)
  - DRUG EXPOSURE DURING PREGNANCY [None]
  - PREGNANCY [None]
  - TREATMENT NONCOMPLIANCE [None]
